FAERS Safety Report 10021537 (Version 1)
Quarter: 2014Q1

REPORT INFORMATION
  Report Type: Spontaneous
  Country: US (occurrence: US)
  Receive Date: 20140319
  Receipt Date: 20140319
  Transmission Date: 20141002
  Serious: Yes (Other)
  Sender: FDA-Public Use
  Company Number: US-SA-2014SA032260

PATIENT
  Age: 70 Year
  Sex: Female

DRUGS (1)
  1. LANTUS [Suspect]
     Indication: DIABETES MELLITUS
     Route: 065
     Dates: start: 2011

REACTIONS (4)
  - Diabetes mellitus inadequate control [Unknown]
  - Blood pressure increased [Unknown]
  - Weight increased [Unknown]
  - Erythema [Unknown]
